FAERS Safety Report 7606829-0 (Version None)
Quarter: 2011Q3

REPORT INFORMATION
  Report Type: 
  Country: None (occurrence: None)
  Receive Date: 20110713
  Receipt Date: 20110707
  Transmission Date: 20111222
  Serious: Yes (Other)
  Sender: FDA-Public Use
  Company Number: US-GLAXOSMITHKLINE-A0920086A

PATIENT
  Age: 62 Year
  Sex: Female
  Weight: 57 kg

DRUGS (14)
  1. TYKERB [Suspect]
     Indication: BREAST CANCER
     Dosage: 1000MG PER DAY
     Route: 048
     Dates: start: 20100601
  2. XELODA [Suspect]
     Indication: BREAST CANCER
     Route: 065
     Dates: start: 20100601, end: 20100101
  3. ZOMETA [Concomitant]
  4. VITAMIN D [Concomitant]
  5. MAGNESIUM [Concomitant]
  6. VITAMIN B-12 [Concomitant]
  7. METAMUCIL-2 [Concomitant]
  8. VACCINE [Concomitant]
     Indication: NEOPLASM MALIGNANT
  9. NEXIUM [Concomitant]
  10. DOMPERIDONE [Concomitant]
  11. MULTI-VITAMIN [Concomitant]
  12. B6 [Concomitant]
  13. HERCEPTIN [Concomitant]
  14. CALCIUM CARBONATE [Concomitant]

REACTIONS (15)
  - GASTROINTESTINAL TOXICITY [None]
  - DISEASE PROGRESSION [None]
  - GASTROINTESTINAL BACTERIAL INFECTION [None]
  - NAIL DISCOLOURATION [None]
  - DRUG INEFFECTIVE [None]
  - ABDOMINAL DISCOMFORT [None]
  - VOMITING [None]
  - ONYCHOMADESIS [None]
  - ABDOMINAL PAIN UPPER [None]
  - DIARRHOEA [None]
  - PAIN IN EXTREMITY [None]
  - ONYCHALGIA [None]
  - NAUSEA [None]
  - ABDOMINAL DISTENSION [None]
  - METASTATIC NEOPLASM [None]
